FAERS Safety Report 4353150-2 (Version None)
Quarter: 2004Q2

REPORT INFORMATION
  Report Type: 
  Country: None (occurrence: None)
  Receive Date: 20040429
  Receipt Date: 20040416
  Transmission Date: 20050107
  Serious: Yes (Other)
  Sender: FDA-Public Use
  Company Number: 206116

PATIENT
  Age: 65 Year
  Sex: Female
  Weight: 50 kg

DRUGS (9)
  1. HERCEPTIN [Suspect]
     Indication: BREAST CANCER
     Dosage: 200 MG, SINGLE, INTRAVENOUS; 2MG/KG, 1/WEEK, INTRAVENOUS
     Route: 042
     Dates: start: 20030805, end: 20030805
  2. HERCEPTIN [Suspect]
     Indication: BREAST CANCER
     Dosage: 200 MG, SINGLE, INTRAVENOUS; 2MG/KG, 1/WEEK, INTRAVENOUS
     Route: 042
     Dates: start: 20030813, end: 20031022
  3. DOCETAXEL (DOCETAXEL) [Suspect]
     Indication: BREAST CANCER
     Dosage: 100 MG/M2, Q3W, INTRAVENOUS
     Route: 042
     Dates: start: 20030806, end: 20031105
  4. FUROSEMIDE [Concomitant]
  5. BOI-K (POTASSIUM ASCORBATE) [Concomitant]
  6. FERROUS SULFATE TAB [Concomitant]
  7. LORAZEPAM [Concomitant]
  8. ONDANSETRON HCL [Concomitant]
  9. PREDNISONA (PREDNISONE) [Concomitant]

REACTIONS (4)
  - CARDIAC FAILURE CONGESTIVE [None]
  - CARDIOTOXICITY [None]
  - FEBRILE NEUTROPENIA [None]
  - REFUSAL OF TREATMENT BY PATIENT [None]
